FAERS Safety Report 18769685 (Version 1)
Quarter: 2021Q1

REPORT INFORMATION
  Report Type: Spontaneous
  Country: US (occurrence: US)
  Receive Date: 20210121
  Receipt Date: 20210121
  Transmission Date: 20210419
  Serious: No
  Sender: FDA-Public Use
  Company Number: US-PFIZER INC-2021031217

PATIENT
  Age: 85 Year
  Sex: Female
  Weight: 54.88 kg

DRUGS (1)
  1. DILANTIN [Suspect]
     Active Substance: PHENYTOIN
     Indication: BRAIN INJURY
     Dosage: 100 MG, 1X/DAY [100 MG CAPSULES ONCE EVERY NIGHT ? ORANGE AND WHITE]

REACTIONS (4)
  - Pruritus [Unknown]
  - Body height decreased [Unknown]
  - Gait disturbance [Unknown]
  - Musculoskeletal stiffness [Unknown]
